FAERS Safety Report 5358383-4 (Version None)
Quarter: 2007Q2

REPORT INFORMATION
  Report Type: 
  Country: None (occurrence: None)
  Receive Date: 20070530
  Receipt Date: 20061004
  Transmission Date: 20071010
  Serious: Yes (Other)
  Sender: FDA-Public Use
  Company Number: US200601000846

PATIENT
  Age: 43 Year
  Weight: 59 kg

DRUGS (11)
  1. ZYPREXA [Suspect]
     Indication: ANXIETY
     Dates: start: 19990803, end: 20000815
  2. LIPITOR(OLANZAPINE UNKNOWN FORMULATION) UNKNOWN [Concomitant]
  3. HYDROCODONE W/ACETYLSALICYLIC ACID (ACETYLSALICYLIC ACID, HYDROCODONE) [Concomitant]
  4. ZITHROMAX [Concomitant]
  5. PREVACID [Concomitant]
  6. LORAZEPAM [Concomitant]
  7. METHYLPHENIDATE HCL [Concomitant]
  8. TOPAMAX [Concomitant]
  9. SYNTHRIOD (LEVOTHYROXINE SODIUM) [Concomitant]
  10. SEROQUEL [Concomitant]
  11. TEMAZEPAM [Concomitant]

REACTIONS (2)
  - DIABETES MELLITUS NON-INSULIN-DEPENDENT [None]
  - WEIGHT INCREASED [None]
